FAERS Safety Report 13782435 (Version 1)
Quarter: 2017Q3

REPORT INFORMATION
  Report Type: Spontaneous
  Country: US (occurrence: US)
  Receive Date: 20170724
  Receipt Date: 20170724
  Transmission Date: 20171127
  Serious: Yes (Other)
  Sender: FDA-Public Use
  Company Number: US-PRINSTON PHARMACEUTICAL INC.-2016PRN00330

PATIENT
  Age: 62 Year
  Sex: Female
  Weight: 72.56 kg

DRUGS (4)
  1. LOSARTAN POTASSIUM. [Suspect]
     Active Substance: LOSARTAN POTASSIUM
     Indication: HYPERTENSION
     Dosage: 25 MG, 1X/DAY
     Route: 048
     Dates: start: 20161128
  2. PROVENTIL/PROAIR HFA [Concomitant]
     Dosage: 2 PUFFS EVERY 4 HOURS AS NEEDED
  3. OMEPRAZOLE. [Concomitant]
     Active Substance: OMEPRAZOLE
     Dosage: 20 MG, 1X/DAY
     Route: 048
  4. ZOFRAN ODT [Concomitant]
     Active Substance: ONDANSETRON HYDROCHLORIDE
     Dosage: 4 MG EVERY 8 HOURS AS NEEDED
     Route: 048

REACTIONS (13)
  - Eye swelling [Recovering/Resolving]
  - Product substitution issue [Not Recovered/Not Resolved]
  - Dizziness [Recovering/Resolving]
  - Hypersensitivity [Recovering/Resolving]
  - Vision blurred [Recovering/Resolving]
  - Dysphonia [Recovering/Resolving]
  - Disorientation [Not Recovered/Not Resolved]
  - Erythema [Not Recovered/Not Resolved]
  - Swelling [Not Recovered/Not Resolved]
  - Angioedema [Recovering/Resolving]
  - Insomnia [Unknown]
  - Swelling face [Recovering/Resolving]
  - Ocular hyperaemia [Recovering/Resolving]

NARRATIVE: CASE EVENT DATE: 201611
